APPROVED DRUG PRODUCT: PHENYLEPHRINE HYDROCHLORIDE
Active Ingredient: PHENYLEPHRINE HYDROCHLORIDE
Strength: 100MG/10ML (10MG/ML)
Dosage Form/Route: SOLUTION;INTRAVENOUS
Application: A210025 | Product #003 | TE Code: AP1
Applicant: PH HEALTH LTD
Approved: Dec 21, 2018 | RLD: No | RS: No | Type: RX